FAERS Safety Report 9141264 (Version 2)
Quarter: 2013Q1

REPORT INFORMATION
  Report Type: Report from Study
  Country: US (occurrence: US)
  Receive Date: 20130305
  Receipt Date: 20130306
  Transmission Date: 20140127
  Serious: Yes (Hospitalization)
  Sender: FDA-Public Use
  Company Number: US-ABBOTT-13P-163-1055098-00

PATIENT
  Age: 60 Year
  Sex: Female

DRUGS (11)
  1. HUMIRA PEN [Suspect]
     Indication: CROHN^S DISEASE
     Dates: start: 200908, end: 20130119
  2. EVISTA [Concomitant]
     Indication: OSTEOPOROSIS
     Dosage: 60 MG DAILY
  3. PRENATAL VITAMINS [Concomitant]
     Indication: VITAMIN SUPPLEMENTATION
     Dosage: DAILY
  4. PRENATAL VITAMINS [Concomitant]
     Indication: CROHN^S DISEASE
  5. OSCAL [Concomitant]
     Indication: MINERAL SUPPLEMENTATION
     Dosage: 500 MG PLUS D
  6. CLONAZEPAM [Concomitant]
     Indication: INSOMNIA
     Dosage: NIGHTLY
  7. NORTRIPTLYLINE [Concomitant]
     Indication: TRIGEMINAL NEURALGIA
     Dosage: 70 MG DAILY
  8. MORPHINE SULFATE [Concomitant]
     Indication: NEURALGIA
  9. BACLOFEN [Concomitant]
     Indication: FACIAL PAIN
  10. LYRICA [Concomitant]
     Indication: NEURALGIA
  11. MIRALAX [Concomitant]
     Indication: CONSTIPATION

REACTIONS (3)
  - Trigeminal neuralgia [Unknown]
  - Nausea [Not Recovered/Not Resolved]
  - Vomiting [Not Recovered/Not Resolved]
